FAERS Safety Report 11079624 (Version 1)
Quarter: 2015Q2

REPORT INFORMATION
  Report Type: Spontaneous
  Country: DE (occurrence: DE)
  Receive Date: 20150430
  Receipt Date: 20150430
  Transmission Date: 20150821
  Serious: Yes (Congenital Anomaly)
  Sender: FDA-Public Use
  Company Number: GXKR2015DE002217

PATIENT

DRUGS (4)
  1. DOXAKNE [Concomitant]
     Indication: ACNE
     Dosage: 50 [MG/D ]
     Route: 064
     Dates: start: 20131227, end: 20140124
  2. SKINOREN [Concomitant]
     Indication: ACNE
     Route: 064
     Dates: start: 20131227, end: 20131228
  3. FLUOXETINE [Suspect]
     Active Substance: FLUOXETINE\FLUOXETINE HYDROCHLORIDE
     Indication: DEPRESSION
     Dosage: 20 [MG/D ]
     Route: 064
     Dates: start: 20131227, end: 20140124
  4. FOLIO FORTE [Concomitant]
     Active Substance: FOLIC ACID\VITAMINS
     Indication: PROPHYLAXIS OF NEURAL TUBE DEFECT
     Dosage: 0.9 MG, UNK
     Route: 064
     Dates: start: 20140128, end: 20140927

REACTIONS (1)
  - Atrial septal defect [Not Recovered/Not Resolved]
